FAERS Safety Report 5131707-9 (Version None)
Quarter: 2006Q4

REPORT INFORMATION
  Report Type: 
  Country: None (occurrence: None)
  Receive Date: 20061020
  Receipt Date: 20060919
  Transmission Date: 20070319
  Serious: Yes (Disabling)
  Sender: FDA-Public Use
  Company Number: CA-BOEHRINGER INGELHEIM PHARMACEUTICALS, INC.-2006-CN-00491CN

PATIENT
  Sex: Male

DRUGS (15)
  1. TIPRANAVIR + RITONAVIR CO-ADMIN [Suspect]
     Indication: HIV INFECTION
     Dosage: 1000MG TPV/DAY - 200MG RTV/DAY
     Route: 048
     Dates: start: 20051015
  2. TENOFOVIR [Concomitant]
     Indication: HIV INFECTION
     Route: 048
     Dates: start: 20060106
  3. D4T [Concomitant]
     Indication: HIV INFECTION
     Route: 048
     Dates: start: 20060106
  4. FUZEON [Concomitant]
     Indication: HIV INFECTION
     Route: 058
     Dates: start: 20051015
  5. ACYCLOVIR [Concomitant]
     Route: 048
     Dates: start: 20051027
  6. SEPTRA [Concomitant]
     Indication: ANTIFUNGAL PROPHYLAXIS
     Dosage: 80/400MG
     Dates: start: 20040730
  7. AZITHROMYCIN [Concomitant]
     Indication: MYCOBACTERIUM AVIUM COMPLEX INFECTION
     Route: 048
     Dates: start: 20051216
  8. MEGACE [Concomitant]
     Indication: INCREASED APPETITE
     Route: 048
     Dates: start: 20051216
  9. ETHAMBUTOL HYDROCHLORIDE [Concomitant]
     Indication: MYCOBACTERIUM AVIUM COMPLEX INFECTION
     Route: 048
     Dates: start: 20051024
  10. ITRACONAZOLE [Concomitant]
     Indication: FUNGAL INFECTION
     Route: 048
     Dates: start: 20060109
  11. GABAPENTIN [Concomitant]
     Indication: DEPRESSION
     Route: 048
     Dates: start: 20060105, end: 20060124
  12. DOMPERIDONE [Concomitant]
     Indication: NAUSEA
     Route: 048
  13. DOMPERIDONE [Concomitant]
     Indication: VOMITING
  14. CELEXA [Concomitant]
     Indication: DEPRESSION
     Route: 048
  15. ANDROGEL [Concomitant]
     Indication: HORMONE THERAPY
     Route: 048
     Dates: start: 20060112

REACTIONS (2)
  - NECROTISING RETINITIS [None]
  - RETINAL DETACHMENT [None]
